FAERS Safety Report 4514383-5 (Version None)
Quarter: 2004Q4

REPORT INFORMATION
  Report Type: 
  Country: None (occurrence: None)
  Receive Date: 20041124
  Receipt Date: 20041110
  Transmission Date: 20050328
  Serious: Yes (Hospitalization)
  Sender: FDA-Public Use
  Company Number: FABR-10828

PATIENT
  Age: 32 Year
  Sex: Male
  Weight: 51.2 kg

DRUGS (13)
  1. FABRAZYME [Suspect]
     Indication: FABRY'S DISEASE
     Dosage: 50 MG Q2WKS IV
     Route: 042
     Dates: start: 20040708
  2. TEGRETOL [Concomitant]
  3. ROCALTOROL [Concomitant]
  4. KREMEZIN [Concomitant]
  5. NORVASC [Concomitant]
  6. CALTAN [Concomitant]
  7. JUSO [Concomitant]
  8. PROGRAF [Concomitant]
  9. CELLCEPT [Concomitant]
  10. BAKTAR [Concomitant]
  11. BAYASPIRIN [Concomitant]
  12. CALDENALIN [Concomitant]
  13. FAMOTIDINE [Concomitant]

REACTIONS (1)
  - RENAL TRANSPLANT [None]
